FAERS Safety Report 19973495 (Version 1)
Quarter: 2021Q4

REPORT INFORMATION
  Report Type: Spontaneous
  Country: US (occurrence: US)
  Receive Date: 20211020
  Receipt Date: 20211020
  Transmission Date: 20220303
  Serious: No
  Sender: FDA-Public Use
  Company Number: None

PATIENT
  Age: 42 Year
  Sex: Female
  Weight: 63 kg

DRUGS (2)
  1. KIRKLAND SIGNATURE ALLER TEC ALLERGY [Suspect]
     Active Substance: CETIRIZINE HYDROCHLORIDE
     Indication: Hypersensitivity
     Dosage: ?          QUANTITY:1 TABLET(S);
     Route: 048
     Dates: end: 20211018
  2. NATUREMADE MULTIVITAMINS FOR HER [Concomitant]

REACTIONS (2)
  - Pruritus [None]
  - Pruritus [None]

NARRATIVE: CASE EVENT DATE: 20211019
